FAERS Safety Report 10228329 (Version 1)
Quarter: 2014Q2

REPORT INFORMATION
  Report Type: Spontaneous
  Country: US (occurrence: None)
  Receive Date: 20140505
  Receipt Date: 20140505
  Transmission Date: 20141212
  Serious: No
  Sender: FDA-Public Use
  Company Number: US-014528

PATIENT
  Age: 64 Year
  Sex: Male
  Weight: 70.31 kg

DRUGS (1)
  1. PICO-SALAX (NOT SPECIFIED) [Suspect]
     Indication: BOWEL PREPARATION
     Dosage: 1ST PACK ON 19 JAN 2014 AT 6PM AND 2ND PACK ON 20 JAN2014 AT 12AM
     Route: 048
     Dates: start: 20140119, end: 20140120

REACTIONS (1)
  - Drug ineffective [None]
